FAERS Safety Report 6864443-9 (Version None)
Quarter: 2010Q3

REPORT INFORMATION
  Report Type: 
  Country: None (occurrence: None)
  Receive Date: 20100721
  Receipt Date: 20080517
  Transmission Date: 20110219
  Serious: No
  Sender: FDA-Public Use
  Company Number: US-PFIZER INC-2008027245

PATIENT
  Sex: Female
  Weight: 97.52 kg

DRUGS (8)
  1. CHANTIX [Suspect]
     Indication: SMOKING CESSATION THERAPY
     Dates: start: 20080317
  2. METFORMIN [Concomitant]
     Indication: DIABETES MELLITUS
  3. PRILOSEC [Concomitant]
  4. METHADONE HCL [Concomitant]
  5. CHOLESTEROL- AND TRIGLYCERIDE REDUCERS [Concomitant]
  6. DETROL LA [Concomitant]
  7. ALL OTHER THERAPEUTIC PRODUCTS [Concomitant]
     Indication: RESTLESS LEGS SYNDROME
  8. CELEXA [Concomitant]

REACTIONS (3)
  - ABNORMAL DREAMS [None]
  - NIGHTMARE [None]
  - SOMNOLENCE [None]
